FAERS Safety Report 22105367 (Version 1)
Quarter: 2023Q1

REPORT INFORMATION
  Report Type: Other
  Country: DE (occurrence: DE)
  Receive Date: 20230317
  Receipt Date: 20230317
  Transmission Date: 20230418
  Serious: Yes (Hospitalization, Other)
  Sender: FDA-Public Use
  Company Number: DE-CELLTRION INC.-2023DE005252

PATIENT

DRUGS (8)
  1. INFLIXIMAB [Suspect]
     Active Substance: INFLIXIMAB
     Indication: Product used for unknown indication
  2. HUMIRA [Suspect]
     Active Substance: ADALIMUMAB
     Indication: Product used for unknown indication
     Dosage: FIRST ADMINISTRATION DATE WAS 2015
     Route: 058
     Dates: start: 2015
  3. VEDOLIZUMAB [Suspect]
     Active Substance: VEDOLIZUMAB
     Indication: Product used for unknown indication
     Dosage: STARTED 2019
     Dates: start: 2019
  4. USTEKINUMAB [Suspect]
     Active Substance: USTEKINUMAB
     Indication: Product used for unknown indication
  5. FILGOTINIB [Concomitant]
     Active Substance: FILGOTINIB
     Indication: Product used for unknown indication
     Dosage: 200 MG, QD
     Dates: start: 202202
  6. MESALAMINE [Concomitant]
     Active Substance: MESALAMINE
     Indication: Product used for unknown indication
     Dosage: 2 G
  7. MESALAMINE [Concomitant]
     Active Substance: MESALAMINE
     Dosage: 4.5
  8. PREDNISOLONE [Concomitant]
     Active Substance: PREDNISOLONE
     Indication: Product used for unknown indication
     Dosage: 5 MG

REACTIONS (23)
  - Hyperthyroidism [Not Recovered/Not Resolved]
  - Thrombosis [Unknown]
  - Medullary thyroid cancer [Unknown]
  - Diarrhoea haemorrhagic [Recovering/Resolving]
  - Polyarthritis [Not Recovered/Not Resolved]
  - Clostridial infection [Unknown]
  - Grip strength decreased [Unknown]
  - Arthropathy [Unknown]
  - Impaired driving ability [Unknown]
  - Arthritis [Unknown]
  - Gait inability [Unknown]
  - Arthropathy [Recovering/Resolving]
  - Musculoskeletal stiffness [Unknown]
  - Oligoarthritis [Unknown]
  - Enteropathic spondylitis [Unknown]
  - Colitis [Recovered/Resolved]
  - Nausea [Unknown]
  - Pain [Unknown]
  - Gastrointestinal disorder [Not Recovered/Not Resolved]
  - Abdominal pain [Unknown]
  - Swelling [Unknown]
  - Dizziness [Unknown]
  - Vomiting [Unknown]

NARRATIVE: CASE EVENT DATE: 20211001
